FAERS Safety Report 8343008-6 (Version None)
Quarter: 2012Q2

REPORT INFORMATION
  Report Type: 
  Country: None (occurrence: None)
  Receive Date: 20120508
  Receipt Date: 20120501
  Transmission Date: 20120825
  Serious: Yes (Other)
  Sender: FDA-Public Use
  Company Number: PHHY2011US50858

PATIENT
  Sex: Male

DRUGS (6)
  1. AFINITOR [Suspect]
     Dates: start: 20111027, end: 20111130
  2. AFINITOR [Suspect]
     Indication: TUBEROUS SCLEROSIS
     Dosage: 2.5 MG, DAILY
     Route: 048
     Dates: start: 20110507
  3. AFINITOR [Suspect]
     Dosage: 5 MG, DAILY
     Route: 048
     Dates: start: 20120312, end: 20120427
  4. RISPERDAL [Concomitant]
     Dosage: 1-2  DF, QHS
  5. ZYRTEC [Concomitant]
     Dosage: UNK UKN, UNK
     Route: 065
  6. AFINITOR [Suspect]
     Dosage: 5 MG, DAILY
     Route: 048
     Dates: start: 20110516

REACTIONS (8)
  - COUGH [None]
  - RESPIRATORY TRACT CONGESTION [None]
  - MALAISE [None]
  - SINUSITIS [None]
  - PYREXIA [None]
  - ASTHMA [None]
  - SPUTUM DISCOLOURED [None]
  - PNEUMONIA [None]
